FAERS Safety Report 9998775 (Version 1)
Quarter: 2014Q1

REPORT INFORMATION
  Report Type: Spontaneous
  Country: US (occurrence: US)
  Receive Date: 20140312
  Receipt Date: 20140312
  Transmission Date: 20141002
  Serious: No
  Sender: FDA-Public Use
  Company Number: US-BIOGENIDEC-2014BI019776

PATIENT
  Sex: Female

DRUGS (12)
  1. TECFIDERA [Suspect]
     Indication: MULTIPLE SCLEROSIS
     Route: 048
     Dates: start: 20140123
  2. FLEXERIL [Concomitant]
  3. PROMETRIUM [Concomitant]
  4. POTASSIUM [Concomitant]
  5. NUVIGIL [Concomitant]
  6. VIVELLE-DOT [Concomitant]
  7. NEUROTIN [Concomitant]
  8. BACLOFEN [Concomitant]
  9. KLONOPIN [Concomitant]
  10. PROPRANOLOL HCI [Concomitant]
  11. BUSPIRONE HCI [Concomitant]
  12. HYDROCHLOROTHIAZIDE [Concomitant]

REACTIONS (2)
  - Fatigue [Unknown]
  - Abdominal discomfort [Unknown]
